FAERS Safety Report 8132335-3 (Version None)
Quarter: 2012Q1

REPORT INFORMATION
  Report Type: 
  Country: None (occurrence: None)
  Receive Date: 20120213
  Receipt Date: 20111024
  Transmission Date: 20120608
  Serious: No
  Sender: FDA-Public Use
  Company Number: US-BRISTOL-MYERS SQUIBB COMPANY-16189920

PATIENT
  Sex: Male

DRUGS (1)
  1. LYSODREN [Suspect]

REACTIONS (1)
  - DRUG ADMINISTRATION ERROR [None]
